FAERS Safety Report 24669115 (Version 1)
Quarter: 2024Q4

REPORT INFORMATION
  Report Type: Spontaneous
  Country: US (occurrence: US)
  Receive Date: 20241127
  Receipt Date: 20241127
  Transmission Date: 20250115
  Serious: No
  Sender: ELI LILLY AND COMPANY
  Company Number: US-ELI_LILLY_AND_COMPANY-US202411017632

PATIENT
  Age: 23 Year
  Sex: Female

DRUGS (1)
  1. INSULIN LISPRO [Suspect]
     Active Substance: INSULIN LISPRO
     Indication: Type 2 diabetes mellitus
     Dosage: 9 U, OTHER (4-9 UNITS WITH EACH MEAL)
     Route: 058
     Dates: start: 20241022

REACTIONS (3)
  - Arthralgia [Unknown]
  - Blood glucose increased [Unknown]
  - Product dose omission issue [Unknown]
